FAERS Safety Report 7517291-0 (Version None)
Quarter: 2011Q2

REPORT INFORMATION
  Report Type: 
  Country: None (occurrence: None)
  Receive Date: 20110601
  Receipt Date: 20110525
  Transmission Date: 20111010
  Serious: Yes (Other)
  Sender: FDA-Public Use
  Company Number: US-US-EMD SERONO, INC.-231683J10USA

PATIENT
  Sex: Female

DRUGS (2)
  1. REBIF [Suspect]
     Route: 058
     Dates: start: 20090509
  2. REBIF [Suspect]
     Indication: RELAPSING-REMITTING MULTIPLE SCLEROSIS
     Dates: start: 20030201, end: 20070724

REACTIONS (6)
  - MULTIPLE SCLEROSIS RELAPSE [None]
  - INJECTION SITE REACTION [None]
  - GOITRE [None]
  - NEUROPATHY PERIPHERAL [None]
  - PNEUMONIA VIRAL [None]
  - INFLUENZA [None]
